FAERS Safety Report 5804522-8 (Version None)
Quarter: 2008Q3

REPORT INFORMATION
  Report Type: 
  Country: None (occurrence: None)
  Receive Date: 20080707
  Receipt Date: 20080707
  Transmission Date: 20090109
  Serious: Yes (Death)
  Sender: FDA-Public Use
  Company Number: None

PATIENT
  Age: 69 Year
  Sex: Male
  Weight: 78 kg

DRUGS (1)
  1. TNKASE [Suspect]
     Indication: ACUTE MYOCARDIAL INFARCTION
     Dosage: 40 MG BOLUS IV BOLUS
     Route: 040
     Dates: start: 20080522, end: 20080522

REACTIONS (10)
  - ACUTE MYOCARDIAL INFARCTION [None]
  - BRAIN HERNIATION [None]
  - CEREBRAL HAEMORRHAGE [None]
  - CORONARY ARTERY DISEASE [None]
  - LETHARGY [None]
  - NAUSEA [None]
  - PROCEDURAL COMPLICATION [None]
  - PUPIL FIXED [None]
  - UNRESPONSIVE TO STIMULI [None]
  - VOMITING [None]
